FAERS Safety Report 7933684-1 (Version None)
Quarter: 2011Q4

REPORT INFORMATION
  Report Type: 
  Country: None (occurrence: None)
  Receive Date: 20111122
  Receipt Date: 20111115
  Transmission Date: 20120403
  Serious: Yes (Other)
  Sender: FDA-Public Use
  Company Number: PHHY2011AU100903

PATIENT
  Sex: Female

DRUGS (1)
  1. ZOLEDRONOC ACID [Suspect]
     Indication: OSTEOPOROSIS
     Dosage: 5 MG, UNK
     Route: 042
     Dates: start: 20111115

REACTIONS (5)
  - VOMITING [None]
  - HYPERHIDROSIS [None]
  - PRESYNCOPE [None]
  - FAECAL INCONTINENCE [None]
  - PALLOR [None]
